FAERS Safety Report 7581731-1 (Version None)
Quarter: 2011Q2

REPORT INFORMATION
  Report Type: 
  Country: None (occurrence: None)
  Receive Date: 20110629
  Receipt Date: 20110620
  Transmission Date: 20111010
  Serious: Yes (Hospitalization)
  Sender: FDA-Public Use
  Company Number: US-ASTRAZENECA-2011SE14961

PATIENT
  Age: 83 Year
  Sex: Female

DRUGS (2)
  1. UNSPECIFIED [Concomitant]
  2. NEXIUM [Suspect]
     Route: 048

REACTIONS (6)
  - OXYGEN SUPPLEMENTATION [None]
  - GASTRIC DISORDER [None]
  - HYPOVITAMINOSIS [None]
  - GASTRIC POLYPS [None]
  - THYROIDECTOMY [None]
  - MEMORY IMPAIRMENT [None]
